FAERS Safety Report 4334941-0 (Version None)
Quarter: 2004Q2

REPORT INFORMATION
  Report Type: 
  Country: None (occurrence: None)
  Receive Date: 20040408
  Receipt Date: 20030821
  Transmission Date: 20050107
  Serious: Yes (Hospitalization, Other)
  Sender: FDA-Public Use
  Company Number: PHBS2003CH08887

PATIENT
  Age: 59 Year
  Sex: Female

DRUGS (8)
  1. CREON [Concomitant]
     Indication: PANCREATIC CARCINOMA
     Dosage: 900 MG/DAY
     Dates: start: 20030718
  2. KALIUM [Concomitant]
     Indication: MINERAL SUPPLEMENTATION
     Dosage: 3 TABLET/DAY
     Route: 048
     Dates: start: 20030814
  3. COLPERMIN [Concomitant]
     Indication: ABDOMINAL PAIN
     Dosage: 2 CAPS/DAY
     Route: 048
     Dates: start: 20030815
  4. ZELMAC [Suspect]
     Indication: GASTRIC DISORDER
     Dosage: 12 MG/DAY
     Dates: start: 20030809, end: 20030818
  5. PASPERTIN [Suspect]
     Indication: IMPAIRED GASTRIC EMPTYING
     Dosage: 6.7 MG, TID
     Dates: start: 20030809
  6. PANTOZOL [Concomitant]
     Indication: REFLUX OESOPHAGITIS
     Dosage: 40 MG/DAY
     Dates: start: 20030814
  7. VOLTAREN [Suspect]
     Indication: ABDOMINAL PAIN
     Dosage: 100 MG/DAY
     Dates: start: 20030814
  8. CLOPAMIDE [Concomitant]

REACTIONS (2)
  - COMA [None]
  - STATUS EPILEPTICUS [None]
